FAERS Safety Report 13795062 (Version 5)
Quarter: 2023Q4

REPORT INFORMATION
  Report Type: Spontaneous
  Country: FR (occurrence: FR)
  Receive Date: 20170726
  Receipt Date: 20231220
  Transmission Date: 20240109
  Serious: Yes (Life-Threatening, Hospitalization, Disabling, Other)
  Sender: FDA-Public Use
  Company Number: FR-BAYER-2013-060567

PATIENT
  Age: 27 Year
  Sex: Female
  Weight: 57 kg

DRUGS (3)
  1. YAZ [Suspect]
     Active Substance: DROSPIRENONE\ETHINYL ESTRADIOL
     Indication: Acne
     Dosage: 1 DF, QD
     Route: 048
     Dates: start: 20111216, end: 20120611
  2. TEGRETOL [Concomitant]
     Active Substance: CARBAMAZEPINE
     Indication: Pain
     Dosage: UNK
     Dates: start: 201806
  3. IBUPROFEN [Concomitant]
     Active Substance: IBUPROFEN
     Indication: Pain
     Dosage: UNK
     Dates: start: 20190527

REACTIONS (37)
  - Cerebral venous thrombosis [Recovered/Resolved with Sequelae]
  - Cerebral haematoma [None]
  - Haemorrhagic stroke [Recovered/Resolved with Sequelae]
  - Brain oedema [Recovered/Resolved with Sequelae]
  - Brain herniation [Recovered/Resolved with Sequelae]
  - Hemiparesis [None]
  - Quadrantanopia [Not Recovered/Not Resolved]
  - Headache [Recovered/Resolved]
  - Migraine [Not Recovered/Not Resolved]
  - Malaise [None]
  - Vomiting [None]
  - Partial seizures [None]
  - Neurologic neglect syndrome [None]
  - Eye pain [None]
  - Mydriasis [None]
  - Pupillary reflex impaired [None]
  - Visual impairment [None]
  - Visual field defect [None]
  - Disturbance in attention [None]
  - Fatigue [Not Recovered/Not Resolved]
  - Complication associated with device [Not Recovered/Not Resolved]
  - Abdominal pain upper [None]
  - Dizziness [None]
  - Hepatic function abnormal [None]
  - Temporomandibular joint syndrome [None]
  - Cognitive disorder [None]
  - Ataxia [None]
  - Fine motor skill dysfunction [Not Recovered/Not Resolved]
  - Anisocoria [None]
  - Abdominal discomfort [None]
  - Post lumbar puncture syndrome [None]
  - Nausea [None]
  - Affective disorder [None]
  - Ear pain [None]
  - Muscular weakness [None]
  - Scar pain [None]
  - Neuralgia [None]

NARRATIVE: CASE EVENT DATE: 20120301
